FAERS Safety Report 23788134 (Version 1)
Quarter: 2024Q2

REPORT INFORMATION
  Report Type: Other
  Country: US (occurrence: US)
  Receive Date: 20240426
  Receipt Date: 20240426
  Transmission Date: 20240716
  Serious: Yes (Other)
  Sender: FDA-Public Use
  Company Number: US-ROCHE-3547949

PATIENT

DRUGS (16)
  1. LUCENTIS [Suspect]
     Active Substance: RANIBIZUMAB
     Indication: Age-related macular degeneration
     Route: 050
  2. LUCENTIS [Suspect]
     Active Substance: RANIBIZUMAB
     Indication: Diabetic retinal oedema
  3. LUCENTIS [Suspect]
     Active Substance: RANIBIZUMAB
     Indication: Diabetic retinopathy
  4. LUCENTIS [Suspect]
     Active Substance: RANIBIZUMAB
     Indication: Retinal vein occlusion
  5. AVASTIN [Suspect]
     Active Substance: BEVACIZUMAB
     Indication: Age-related macular degeneration
     Dosage: SOLUTION FOR INFUSION
     Route: 050
  6. AVASTIN [Suspect]
     Active Substance: BEVACIZUMAB
     Indication: Diabetic retinal oedema
  7. AVASTIN [Suspect]
     Active Substance: BEVACIZUMAB
     Indication: Diabetic retinopathy
  8. AVASTIN [Suspect]
     Active Substance: BEVACIZUMAB
     Indication: Retinal vein occlusion
  9. MACUGEN [Suspect]
     Active Substance: PEGAPTANIB SODIUM
     Indication: Age-related macular degeneration
     Dosage: UNK
     Route: 050
  10. MACUGEN [Suspect]
     Active Substance: PEGAPTANIB SODIUM
     Indication: Diabetic retinal oedema
  11. MACUGEN [Suspect]
     Active Substance: PEGAPTANIB SODIUM
     Indication: Diabetic retinopathy
  12. MACUGEN [Suspect]
     Active Substance: PEGAPTANIB SODIUM
     Indication: Retinal vein occlusion
  13. EYLEA [Suspect]
     Active Substance: AFLIBERCEPT
     Indication: Age-related macular degeneration
     Dosage: UNK
     Route: 050
  14. EYLEA [Suspect]
     Active Substance: AFLIBERCEPT
     Indication: Diabetic retinal oedema
  15. EYLEA [Suspect]
     Active Substance: AFLIBERCEPT
     Indication: Diabetic retinopathy
  16. EYLEA [Suspect]
     Active Substance: AFLIBERCEPT
     Indication: Retinal vein occlusion

REACTIONS (5)
  - Ischaemic stroke [Unknown]
  - Haemorrhagic stroke [Unknown]
  - Embolic stroke [Unknown]
  - Off label use [Unknown]
  - Off label use [Unknown]
